FAERS Safety Report 6991305-9 (Version None)
Quarter: 2010Q3

REPORT INFORMATION
  Report Type: 
  Country: None (occurrence: None)
  Receive Date: 20100916
  Receipt Date: 20080904
  Transmission Date: 20110219
  Serious: No
  Sender: FDA-Public Use
  Company Number: US-WYE-H05925208

PATIENT
  Sex: Female
  Weight: 72.64 kg

DRUGS (4)
  1. PREMARIN [Suspect]
     Indication: HORMONE THERAPY
     Route: 048
     Dates: start: 20060901
  2. LASIX [Concomitant]
  3. KLOR-CON [Concomitant]
  4. SYNTHROID [Concomitant]

REACTIONS (2)
  - DRUG EFFECT DECREASED [None]
  - PRURITUS GENERALISED [None]
